FAERS Safety Report 23661077 (Version 1)
Quarter: 2024Q1

REPORT INFORMATION
  Report Type: Report from Study
  Country: CO (occurrence: CO)
  Receive Date: 20240322
  Receipt Date: 20240322
  Transmission Date: 20240410
  Serious: Yes (Hospitalization)
  Sender: FDA-Public Use
  Company Number: CO-IPSEN Group, Research and Development-2024-04645

PATIENT
  Age: 36 Year
  Sex: Female
  Weight: 84 kg

DRUGS (6)
  1. LANREOTIDE ACETATE [Suspect]
     Active Substance: LANREOTIDE ACETATE
     Indication: Acromegaly
     Dosage: DEEP SUBCUTANEOUS
     Route: 058
     Dates: start: 20240216
  2. LEVOTHYROXINE [Concomitant]
     Active Substance: LEVOTHYROXINE\LEVOTHYROXINE SODIUM
     Indication: Hypothyroidism
     Route: 048
     Dates: start: 2004, end: 2020
  3. LEVOTHYROXINE [Concomitant]
     Active Substance: LEVOTHYROXINE\LEVOTHYROXINE SODIUM
     Route: 048
     Dates: start: 2020
  4. SPIRONOLACTONE [Concomitant]
     Active Substance: SPIRONOLACTONE
     Indication: Polycystic ovaries
     Route: 048
     Dates: start: 202212
  5. METFORMIN HYDROCHLORIDE [Concomitant]
     Active Substance: METFORMIN HYDROCHLORIDE
     Indication: Polycystic ovaries
     Route: 048
     Dates: start: 202212
  6. OMEPRAZOLE [Concomitant]
     Active Substance: OMEPRAZOLE
     Indication: Gastritis
     Route: 048
     Dates: start: 2006

REACTIONS (2)
  - Anxiety [Not Recovered/Not Resolved]
  - Pain [Not Recovered/Not Resolved]

NARRATIVE: CASE EVENT DATE: 20240201
